FAERS Safety Report 4847342-3 (Version None)
Quarter: 2005Q4

REPORT INFORMATION
  Report Type: 
  Country: None (occurrence: None)
  Receive Date: 20051202
  Receipt Date: 20051118
  Transmission Date: 20060501
  Serious: Yes (Death, Other)
  Sender: FDA-Public Use
  Company Number: 2005-01432

PATIENT
  Age: 47 Year
  Sex: Female
  Weight: 69 kg

DRUGS (7)
  1. VELCADE [Suspect]
     Indication: MULTIPLE MYELOMA
     Dosage: 1.00 MG/M2, INTRAVENOUS
     Route: 042
     Dates: start: 20050414, end: 20050516
  2. HUMALOG [Concomitant]
  3. ITRACONAZOLE [Concomitant]
  4. ACYCLOVIR [Concomitant]
  5. COTRIM [Concomitant]
  6. DIOVAN [Concomitant]
  7. AMLODIPINE BESYLATE [Concomitant]

REACTIONS (21)
  - BLOOD BETA-D-GLUCAN INCREASED [None]
  - BLOOD PRESSURE DECREASED [None]
  - CARDIOMEGALY [None]
  - CELL MARKER INCREASED [None]
  - CEREBRAL ASPERGILLOSIS [None]
  - CEREBRAL HAEMORRHAGE [None]
  - CEREBRAL INFARCTION [None]
  - DIFFUSE ALVEOLAR DAMAGE [None]
  - LUNG CONSOLIDATION [None]
  - NEUTROPENIA [None]
  - PLEURAL EFFUSION [None]
  - PNEUMOCYSTIS JIROVECI PNEUMONIA [None]
  - PNEUMONIA FUNGAL [None]
  - PSEUDOMONAL BACTERAEMIA [None]
  - PULMONARY OEDEMA [None]
  - RESPIRATORY DISORDER [None]
  - SECONDARY IMMUNODEFICIENCY [None]
  - SEPSIS [None]
  - SPUTUM CULTURE POSITIVE [None]
  - STAPHYLOCOCCAL INFECTION [None]
  - THERAPY NON-RESPONDER [None]
